FAERS Safety Report 14502887 (Version 2)
Quarter: 2018Q1

REPORT INFORMATION
  Report Type: Report from Study
  Country: US (occurrence: US)
  Receive Date: 20180208
  Receipt Date: 20180319
  Transmission Date: 20180509
  Serious: Yes (Other)
  Sender: FDA-Public Use
  Company Number: US-TESARO, INC.-US-2018TSO00601

PATIENT

DRUGS (2)
  1. ZEJULA [Suspect]
     Active Substance: NIRAPARIB
     Dosage: 100 MG, QD
     Route: 048
     Dates: start: 20180106
  2. ZEJULA [Suspect]
     Active Substance: NIRAPARIB
     Indication: PROSTATE CANCER
     Dosage: 100 MG, QD
     Route: 048
     Dates: start: 20180106

REACTIONS (8)
  - Urethral obstruction [Not Recovered/Not Resolved]
  - Product use in unapproved indication [Not Recovered/Not Resolved]
  - Anaemia [Not Recovered/Not Resolved]
  - Neoplasm progression [Not Recovered/Not Resolved]
  - Emotional distress [Unknown]
  - Intentional underdose [Not Recovered/Not Resolved]
  - Urethral neoplasm [Not Recovered/Not Resolved]
  - Urinary retention [Not Recovered/Not Resolved]

NARRATIVE: CASE EVENT DATE: 20180106
